FAERS Safety Report 24653759 (Version 1)
Quarter: 2024Q4

REPORT INFORMATION
  Report Type: Spontaneous
  Country: US (occurrence: None)
  Receive Date: 20241121
  Receipt Date: 20241121
  Transmission Date: 20250115
  Serious: Yes (Disabling)
  Sender: Public
  Company Number: None

PATIENT
  Age: 88 Year
  Sex: Female
  Weight: 53.1 kg

DRUGS (24)
  1. TRAMADOL HYDROCHLORIDE [Suspect]
     Active Substance: TRAMADOL HYDROCHLORIDE
     Indication: Arthralgia
     Dosage: OTHER QUANTITY : 25 TABLET(S);?FREQUENCY : TWICE A DAY;?
     Route: 048
     Dates: start: 20241114, end: 20241118
  2. ALBUTEROL [Concomitant]
     Active Substance: ALBUTEROL
  3. AMLODIPINE [Concomitant]
     Active Substance: AMLODIPINE BESYLATE
  4. DICLOFENAC [Concomitant]
     Active Substance: DICLOFENAC
  5. ENTYVIO [Concomitant]
     Active Substance: VEDOLIZUMAB
  6. Estradial vaginal cream [Concomitant]
  7. FLUOXETINE [Concomitant]
     Active Substance: FLUOXETINE HYDROCHLORIDE
  8. FLUTICASONE [Concomitant]
     Active Substance: FLUTICASONE
  9. LOSARTAN [Concomitant]
     Active Substance: LOSARTAN
  10. Mesalamne [Concomitant]
  11. MYRBETRIQ [Concomitant]
     Active Substance: MIRABEGRON
  12. OMEPRAZOLE [Concomitant]
     Active Substance: OMEPRAZOLE
  13. PREMARIN [Concomitant]
     Active Substance: ESTROGENS, CONJUGATED
  14. VANCOMYCIN [Concomitant]
     Active Substance: VANCOMYCIN
  15. ASPIRIN [Concomitant]
     Active Substance: ASPIRIN
  16. CALCIUM [Concomitant]
     Active Substance: CALCIUM
  17. CIMETADINE [Concomitant]
  18. CRANBERRY [Concomitant]
     Active Substance: CRANBERRY
  19. VITAMIN D3 [Concomitant]
     Active Substance: CHOLECALCIFEROL
  20. GLUCOSAMINE [Concomitant]
     Active Substance: GLUCOSAMINE
  21. Chondritine [Concomitant]
  22. LOPERMIDE [Concomitant]
  23. MYLANTA [Concomitant]
     Active Substance: ALUMINUM HYDROXIDE\DIMETHICONE\MAGNESIUM HYDROXIDE
  24. PRESERVISION [Concomitant]

REACTIONS (9)
  - Arthropathy [None]
  - Drug ineffective [None]
  - Depressed mood [None]
  - Pain [None]
  - Lethargy [None]
  - Arthralgia [None]
  - Dysstasia [None]
  - Musculoskeletal disorder [None]
  - Therapy cessation [None]

NARRATIVE: CASE EVENT DATE: 20241114
